FAERS Safety Report 18705525 (Version 1)
Quarter: 2021Q1

REPORT INFORMATION
  Report Type: Spontaneous
  Country: US (occurrence: US)
  Receive Date: 20210105
  Receipt Date: 20210105
  Transmission Date: 20210419
  Serious: Yes (Death)
  Sender: FDA-Public Use
  Company Number: None

PATIENT
  Age: 79 Year
  Sex: Male

DRUGS (2)
  1. MEKINIST [Suspect]
     Active Substance: TRAMETINIB DIMETHYL SULFOXIDE
     Indication: PANCREATIC CARCINOMA
     Route: 048
     Dates: start: 20200909, end: 20201214
  2. CREON [Suspect]
     Active Substance: PANCRELIPASE AMYLASE\PANCRELIPASE LIPASE\PANCRELIPASE PROTEASE
     Indication: PANCREATIC CARCINOMA
     Dosage: ?          OTHER DOSE:3 CAPSULES;OTHER FREQUENCY:WITH MEALS;?
     Route: 048
     Dates: start: 20191231, end: 20201214

REACTIONS (1)
  - Death [None]

NARRATIVE: CASE EVENT DATE: 20201214
